FAERS Safety Report 4811140-7 (Version None)
Quarter: 2005Q4

REPORT INFORMATION
  Report Type: 
  Country: None (occurrence: None)
  Receive Date: 20051027
  Receipt Date: 20051018
  Transmission Date: 20060501
  Serious: Yes (Hospitalization)
  Sender: FDA-Public Use
  Company Number: JP-JPN-A20052499

PATIENT
  Age: 87 Year
  Sex: Female

DRUGS (4)
  1. MODACIN [Suspect]
     Indication: URINARY TRACT INFECTION
     Route: 042
     Dates: start: 20041201
  2. CEFOPERAZONE + SULBACTAM [Concomitant]
     Indication: URINARY TRACT INFECTION
     Route: 065
     Dates: start: 20041201
  3. IMIPENEM + CILASTATIN [Concomitant]
     Indication: URINARY TRACT INFECTION
     Route: 065
     Dates: start: 20041201
  4. CLINDAMYCIN PHOSPHATE [Concomitant]
     Indication: URINARY TRACT INFECTION
     Route: 065
     Dates: start: 20041201

REACTIONS (3)
  - BACTERIA STOOL IDENTIFIED [None]
  - CLOSTRIDIUM COLITIS [None]
  - PYREXIA [None]
